FAERS Safety Report 15833429 (Version 1)
Quarter: 2018Q4

REPORT INFORMATION
  Report Type: Spontaneous
  Country: US (occurrence: US)
  Receive Date: 20181221
  Receipt Date: 20181221
  Transmission Date: 20190205
  Serious: No
  Sender: FDA-Public Use
  Company Number: None

PATIENT
  Age: 75 Year
  Sex: Female

DRUGS (1)
  1. INLYTA [Suspect]
     Active Substance: AXITINIB
     Dates: start: 20181213

REACTIONS (4)
  - Asthenia [None]
  - Dizziness [None]
  - Feeling abnormal [None]
  - Hypophagia [None]

NARRATIVE: CASE EVENT DATE: 20181206
